FAERS Safety Report 5316395-0 (Version None)
Quarter: 2007Q2

REPORT INFORMATION
  Report Type: 
  Country: None (occurrence: None)
  Receive Date: 20070504
  Receipt Date: 20070424
  Transmission Date: 20071010
  Serious: Yes (Other)
  Sender: FDA-Public Use
  Company Number: PHBS2006CA19006

PATIENT
  Age: 29 Year
  Sex: Female

DRUGS (4)
  1. CYCLOSPORINE [Suspect]
     Indication: LUPUS NEPHRITIS
     Dosage: 150 MG, BID
     Route: 048
     Dates: start: 20050430, end: 20050513
  2. PREDNISONE [Concomitant]
     Dosage: 25MG PER DAY
  3. ENAPRIL [Concomitant]
     Dosage: 10MG PER DAY
  4. LASIX [Concomitant]
     Dosage: 80MG PER DAY

REACTIONS (13)
  - BLINDNESS [None]
  - BLOOD CHOLESTEROL INCREASED [None]
  - BLOOD CREATINE PHOSPHOKINASE INCREASED [None]
  - BLOOD LACTATE DEHYDROGENASE INCREASED [None]
  - BRAIN OEDEMA [None]
  - CEREBRAL INFARCTION [None]
  - COMPLEMENT FACTOR C3 DECREASED [None]
  - COMPLEMENT FACTOR C4 DECREASED [None]
  - ERYTHEMA [None]
  - GRAND MAL CONVULSION [None]
  - HAEMOGLOBIN DECREASED [None]
  - HYPERTENSION [None]
  - REVERSIBLE POSTERIOR LEUKOENCEPHALOPATHY SYNDROME [None]
